FAERS Safety Report 21800283 (Version 1)
Quarter: 2022Q4

REPORT INFORMATION
  Report Type: Spontaneous
  Country: US (occurrence: None)
  Receive Date: 20221229
  Receipt Date: 20221229
  Transmission Date: 20230112
  Serious: Yes (Disabling, Other)
  Sender: FDA-Public Use
  Company Number: None

PATIENT
  Age: 66 Year
  Sex: Male
  Weight: 68.95 kg

DRUGS (7)
  1. BUPRENORPHINE [Suspect]
     Active Substance: BUPRENORPHINE
  2. ZOLPIDEM [Concomitant]
  3. METFORMIN [Concomitant]
     Active Substance: METFORMIN HYDROCHLORIDE
  4. VYVANSE [Concomitant]
     Active Substance: LISDEXAMFETAMINE DIMESYLATE
  5. TAMSULOSIN [Concomitant]
     Active Substance: TAMSULOSIN
  6. METOPROLOL [Concomitant]
     Active Substance: METOPROLOL
  7. Vlazodone [Concomitant]

REACTIONS (5)
  - Dental caries [None]
  - Tooth loss [None]
  - Weight decreased [None]
  - General physical health deterioration [None]
  - Job dissatisfaction [None]

NARRATIVE: CASE EVENT DATE: 20210601
